FAERS Safety Report 11353616 (Version 1)
Quarter: 2015Q3

REPORT INFORMATION
  Report Type: Spontaneous
  Country: US (occurrence: US)
  Receive Date: 20150807
  Receipt Date: 20150807
  Transmission Date: 20151125
  Serious: No
  Sender: FDA-Public Use
  Company Number: US-JNJFOC-20150404549

PATIENT
  Age: 59 Year
  Sex: Male
  Weight: 72.12 kg

DRUGS (3)
  1. MENS ROGAINE EXTRA STRENGTH [Suspect]
     Active Substance: MINOXIDIL
     Indication: ALOPECIA
     Dosage: TWICE A DAY AGAIN FOR ABOUT 7 OR 8 DAYS
     Route: 061
  2. MENS ROGAINE EXTRA STRENGTH [Suspect]
     Active Substance: MINOXIDIL
     Indication: ALOPECIA
     Dosage: REDUCED TO ONCE A DAY USAGE
     Route: 061
  3. MENS ROGAINE EXTRA STRENGTH [Suspect]
     Active Substance: MINOXIDIL
     Indication: ALOPECIA
     Dosage: TWICE A DAY FOR APPROXIMATELY 7 DAYS
     Route: 061

REACTIONS (2)
  - Inappropriate schedule of drug administration [Unknown]
  - Application site ulcer [Recovered/Resolved]
